FAERS Safety Report 13070396 (Version 1)
Quarter: 2016Q4

REPORT INFORMATION
  Report Type: Report from Study
  Country: US (occurrence: US)
  Receive Date: 20161228
  Receipt Date: 20161228
  Transmission Date: 20170207
  Serious: Yes (Other)
  Sender: FDA-Public Use
  Company Number: US-AMGEN-USASL2016182006

PATIENT
  Sex: Female

DRUGS (1)
  1. REPATHA [Suspect]
     Active Substance: EVOLOCUMAB
     Indication: BLOOD CHOLESTEROL ABNORMAL
     Dosage: 140 MG, Q2WK
     Route: 065
     Dates: end: 201611

REACTIONS (11)
  - Pneumonia [Unknown]
  - Vomiting [Unknown]
  - Malaise [Unknown]
  - Bone pain [Unknown]
  - Respiratory tract congestion [Unknown]
  - Injection site pain [Unknown]
  - Nasopharyngitis [Unknown]
  - Myalgia [Unknown]
  - Abasia [Unknown]
  - Depression [Unknown]
  - Pain [Unknown]
